FAERS Safety Report 24660012 (Version 1)
Quarter: 2024Q4

REPORT INFORMATION
  Report Type: Spontaneous
  Country: US (occurrence: None)
  Receive Date: 20241123
  Receipt Date: 20241123
  Transmission Date: 20250115
  Serious: Yes (unspecified)
  Sender: Public
  Company Number: None

PATIENT
  Age: 38 Year
  Sex: Female
  Weight: 74.25 kg

DRUGS (5)
  1. MONISTAT 3 [Suspect]
     Active Substance: MICONAZOLE NITRATE
  2. ZEPBOUND [Concomitant]
     Active Substance: TIRZEPATIDE
  3. PHENTERMINE [Concomitant]
     Active Substance: PHENTERMINE\PHENTERMINE HYDROCHLORIDE
  4. SUMATRIPTAN [Concomitant]
  5. Vitamin D and magnesium [Concomitant]

REACTIONS (4)
  - Gait disturbance [None]
  - Burning sensation [None]
  - Vomiting [None]
  - Pain [None]

NARRATIVE: CASE EVENT DATE: 20241123
